FAERS Safety Report 12579631 (Version 1)
Quarter: 2016Q3

REPORT INFORMATION
  Report Type: Spontaneous
  Country: US (occurrence: US)
  Receive Date: 20160721
  Receipt Date: 20160721
  Transmission Date: 20161109
  Serious: No
  Sender: FDA-Public Use
  Company Number: US-CHIESI USA INC-US-MDCO-16-00093

PATIENT

DRUGS (1)
  1. KENGREAL [Suspect]
     Active Substance: CANGRELOR
     Indication: ANTICOAGULANT THERAPY
     Dosage: NOT REPORTED

REACTIONS (2)
  - Off label use [Unknown]
  - No adverse event [Unknown]
